FAERS Safety Report 15135227 (Version 31)
Quarter: 2021Q2

REPORT INFORMATION
  Report Type: Spontaneous
  Country: CA (occurrence: CA)
  Receive Date: 20180712
  Receipt Date: 20210409
  Transmission Date: 20210716
  Serious: Yes (Hospitalization, Other)
  Sender: FDA-Public Use
  Company Number: CA-CELLTRION INC.-2018CA021164

PATIENT

DRUGS (44)
  1. INFLECTRA [Suspect]
     Active Substance: INFLIXIMAB-DYYB
     Dosage: 500 MG, 0, 2, 6, THEN MAINTENANCE EVERY 4 WEEKS
     Route: 042
     Dates: start: 20180716, end: 20180716
  2. INFLECTRA [Suspect]
     Active Substance: INFLIXIMAB-DYYB
     Dosage: 500 MG, 0, 2, 6, THEN MAINTENANCE EVERY 4 WEEKS
     Route: 042
     Dates: start: 20180813, end: 20180813
  3. ALENDRONATE SANDOZ [Concomitant]
     Active Substance: ALENDRONATE SODIUM
     Indication: OSTEOPOROSIS
     Dosage: 70 MG, WEEKLY
     Route: 048
  4. INFLECTRA [Suspect]
     Active Substance: INFLIXIMAB-DYYB
     Dosage: 500 MG, 0, 2, 6, THEN MAINTENANCE EVERY 4 WEEKS
     Route: 042
     Dates: start: 20181009, end: 20181009
  5. INFLECTRA [Suspect]
     Active Substance: INFLIXIMAB-DYYB
     Dosage: 500 MG, 0, 2, 6, THEN MAINTENANCE EVERY 4 WEEKS
     Route: 042
     Dates: start: 20190128, end: 20190128
  6. INFLECTRA [Suspect]
     Active Substance: INFLIXIMAB-DYYB
     Dosage: 600 MG, EVERY 4 WEEKS
     Route: 042
     Dates: start: 20191008
  7. AZATHIOPRINE TEVA [Concomitant]
     Active Substance: AZATHIOPRINE
     Dosage: 50 MG, UNK
     Dates: start: 20180601
  8. LORAZEPAM. [Concomitant]
     Active Substance: LORAZEPAM
     Indication: INSOMNIA
     Dosage: 0.25 MG, AS NEEDED,TAKE 1/2 TABLET OF 0.5MG AT BEDTIME AS NEEDED
     Route: 048
  9. PEPTIDES NOS [Concomitant]
     Dosage: UNK, 2X/DAY
  10. PEPTIDES NOS [Concomitant]
     Dosage: UNK, DAILY (1 BOTTLE PER DAY)
     Route: 048
  11. INFLECTRA [Suspect]
     Active Substance: INFLIXIMAB-DYYB
     Dosage: 700 MG, EVERY 4 WEEKS
     Route: 042
     Dates: start: 20200909
  12. INFLECTRA [Suspect]
     Active Substance: INFLIXIMAB-DYYB
     Dosage: 700 MG, EVERY 4 WEEKS
     Route: 042
     Dates: start: 20201007
  13. AZATHIOPRINE TEVA [Concomitant]
     Active Substance: AZATHIOPRINE
     Dosage: 100 MG, 1X/DAY
     Route: 048
  14. INFLECTRA [Suspect]
     Active Substance: INFLIXIMAB-DYYB
     Dosage: 500 MG, 0, 2, 6, THEN MAINTENANCE EVERY 4 WEEKS
     Route: 042
     Dates: start: 20180913, end: 20180913
  15. INFLECTRA [Suspect]
     Active Substance: INFLIXIMAB-DYYB
     Dosage: 600 MG, EVERY 4 WEEKS
     Route: 042
     Dates: start: 20190521, end: 20190521
  16. INFLECTRA [Suspect]
     Active Substance: INFLIXIMAB-DYYB
     Dosage: 700 MG, EVERY 4 WEEKS
     Route: 042
     Dates: start: 20200422
  17. INFLECTRA [Suspect]
     Active Substance: INFLIXIMAB-DYYB
     Dosage: 700 MG, EVERY 4 WEEKS
     Route: 042
     Dates: start: 20201202
  18. INFLECTRA [Suspect]
     Active Substance: INFLIXIMAB-DYYB
     Dosage: 700 MG, EVERY 4 WEEKS
     Route: 042
     Dates: start: 20210107
  19. ALFUZOSIN SANDOZ [Concomitant]
     Active Substance: ALFUZOSIN
     Dosage: 10 MG, 1X/DAY
     Route: 048
  20. INFLECTRA [Suspect]
     Active Substance: INFLIXIMAB-DYYB
     Indication: COLITIS ULCERATIVE
     Dosage: 500 MG, 0, 2, 6, THEN MAINTENANCE EVERY 4 WEEKS
     Route: 042
     Dates: start: 20180606, end: 20180606
  21. JAMP NYSTATIN [Concomitant]
     Dosage: UNK, 4X/DAY, RINSE MOUTH FOUR TIMES A DAY FOR 7 DAYS
  22. INFLECTRA [Suspect]
     Active Substance: INFLIXIMAB-DYYB
     Dosage: 600 MG, EVERY 4 WEEKS
     Route: 042
     Dates: start: 20191231
  23. INFLECTRA [Suspect]
     Active Substance: INFLIXIMAB-DYYB
     Dosage: 700 MG, EVERY 4 WEEKS
     Route: 042
     Dates: start: 20210309
  24. JAMP VITAMIN D [Concomitant]
     Active Substance: CHOLECALCIFEROL
     Dosage: 10000 IU, WEEKLY
     Route: 048
  25. LORAZEPAM. [Concomitant]
     Active Substance: LORAZEPAM
     Dosage: UNK, AS NEEDED (1/2 TABLET OF 0.5MG HS PRN)
     Route: 048
  26. PREDNISONE TEVA [Concomitant]
     Active Substance: PREDNISONE
     Dosage: UNK
     Dates: start: 20180602
  27. INFLECTRA [Suspect]
     Active Substance: INFLIXIMAB-DYYB
     Dosage: 500 MG, 0, 2, 6, THEN MAINTENANCE EVERY 4 WEEKS
     Route: 042
     Dates: start: 20180617, end: 20180617
  28. INFLECTRA [Suspect]
     Active Substance: INFLIXIMAB-DYYB
     Dosage: 600 MG, EVERY 4 WEEKS
     Route: 042
     Dates: start: 20190910, end: 20190910
  29. INFLECTRA [Suspect]
     Active Substance: INFLIXIMAB-DYYB
     Dosage: 600 MG, EVERY 4 WEEKS
     Route: 042
     Dates: start: 20191203
  30. INFLECTRA [Suspect]
     Active Substance: INFLIXIMAB-DYYB
     Dosage: 600 MG, EVERY 4 WEEKS
     Route: 042
     Dates: start: 20200325, end: 20200325
  31. CORTISONE [Concomitant]
     Active Substance: CORTISONE
     Dosage: UNK
     Dates: start: 201911
  32. JAMP CALCIUM [Concomitant]
     Dosage: 500 MG, 1X/DAY
     Route: 048
  33. PREDNISONE TEVA [Concomitant]
     Active Substance: PREDNISONE
     Dosage: 40 MG, 1X/DAY FOR 7 DAYS AND TAPER
     Route: 048
  34. SPIRIVA [Concomitant]
     Active Substance: TIOTROPIUM BROMIDE MONOHYDRATE
     Dosage: 18 UG, 1X/DAY
     Route: 055
  35. TEVA PREGABALIN [Concomitant]
     Active Substance: PREGABALIN
     Dosage: 50MG 1X/DAY AT NOON, AND 150MG 2X/DAY AT 7AM AND 9PM
     Route: 048
  36. INFLECTRA [Suspect]
     Active Substance: INFLIXIMAB-DYYB
     Dosage: 700 MG, AT 0, 2, 6, THEN EVERY 4 WEEKS
     Route: 042
     Dates: start: 20180606, end: 20190423
  37. INFLECTRA [Suspect]
     Active Substance: INFLIXIMAB-DYYB
     Dosage: 500 MG, 0, 2, 6, THEN MAINTENANCE EVERY 4 WEEKS
     Route: 042
     Dates: start: 20180913, end: 20180913
  38. INFLECTRA [Suspect]
     Active Substance: INFLIXIMAB-DYYB
     Dosage: 500 MG, 0, 2, 6, THEN MAINTENANCE EVERY 4 WEEKS
     Route: 042
     Dates: start: 20190325, end: 20190325
  39. INFLECTRA [Suspect]
     Active Substance: INFLIXIMAB-DYYB
     Dosage: 500 MG, 0, 2, 6, THEN MAINTENANCE EVERY 4 WEEKS
     Route: 042
     Dates: start: 20190423, end: 20190423
  40. INFLECTRA [Suspect]
     Active Substance: INFLIXIMAB-DYYB
     Dosage: 600 MG, EVERY 4 WEEKS
     Route: 042
     Dates: start: 20190812, end: 20190812
  41. INFLECTRA [Suspect]
     Active Substance: INFLIXIMAB-DYYB
     Dosage: 600 MG, EVERY 4 WEEKS
     Route: 042
     Dates: start: 20200129
  42. INFLECTRA [Suspect]
     Active Substance: INFLIXIMAB-DYYB
     Dosage: 700 MG, EVERY 4 WEEKS
     Route: 042
     Dates: start: 20201102
  43. PREDNISONE. [Concomitant]
     Active Substance: PREDNISONE
     Dosage: UNK, 2X/DAY
  44. PEPTIDES NOS [Concomitant]
     Dosage: 1 BOTTLE DAILY
     Route: 048

REACTIONS (30)
  - C-reactive protein increased [Unknown]
  - Erythema [Not Recovered/Not Resolved]
  - Hot flush [Not Recovered/Not Resolved]
  - Poor venous access [Unknown]
  - Pneumonia [Unknown]
  - Joint swelling [Unknown]
  - Off label use [Unknown]
  - Back pain [Unknown]
  - Chills [Not Recovered/Not Resolved]
  - Condition aggravated [Recovering/Resolving]
  - Cough [Unknown]
  - Oropharyngeal pain [Not Recovered/Not Resolved]
  - Peripheral swelling [Unknown]
  - Angina pectoris [Unknown]
  - Weight increased [Not Recovered/Not Resolved]
  - Productive cough [Not Recovered/Not Resolved]
  - Off label use [Unknown]
  - Intentional product use issue [Unknown]
  - Testicular disorder [Unknown]
  - Urinary tract infection [Unknown]
  - Fall [Unknown]
  - Fatigue [Not Recovered/Not Resolved]
  - Cellulitis [Recovered/Resolved]
  - Inappropriate schedule of product administration [Unknown]
  - Abdominal pain lower [Unknown]
  - General physical health deterioration [Not Recovered/Not Resolved]
  - Oxygen saturation decreased [Not Recovered/Not Resolved]
  - Arrhythmia [Unknown]
  - Dyspnoea [Recovered/Resolved]
  - Heart rate increased [Unknown]

NARRATIVE: CASE EVENT DATE: 201806
